FAERS Safety Report 7230961-7 (Version None)
Quarter: 2011Q1

REPORT INFORMATION
  Report Type: 
  Country: None (occurrence: None)
  Receive Date: 20110118
  Receipt Date: 20110111
  Transmission Date: 20110831
  Serious: Yes (Death, Hospitalization)
  Sender: FDA-Public Use
  Company Number: IT-ROCHE-748611

PATIENT
  Sex: Female

DRUGS (11)
  1. ROACTEMRA [Suspect]
     Indication: RHEUMATOID ARTHRITIS
     Route: 042
     Dates: start: 20100427, end: 20101028
  2. METHOTREXATE [Concomitant]
     Dates: start: 20010101, end: 20100101
  3. ANTRA [Suspect]
     Indication: PROPHYLAXIS
     Dosage: ROUTE: OS
     Route: 048
     Dates: start: 20101002, end: 20101213
  4. DELTACORTENE [Suspect]
     Indication: RHEUMATOID ARTHRITIS
     Route: 050
     Dates: start: 20100727, end: 20100727
  5. PROTON PUMP INHIBITOR [Concomitant]
     Dates: start: 20010101, end: 20100101
  6. SEACOR [Concomitant]
  7. DIBASE [Concomitant]
  8. VITAMIN D [Concomitant]
     Dates: start: 20010101, end: 20100101
  9. HYDROXYCHLOROQUINE SULFATE [Concomitant]
     Dates: start: 20010101, end: 20100101
  10. NERIXIA [Concomitant]
     Route: 030
  11. CALCIUM SANDOZ [Concomitant]

REACTIONS (1)
  - ABDOMINAL ABSCESS [None]
